FAERS Safety Report 17442324 (Version 1)
Quarter: 2020Q1

REPORT INFORMATION
  Report Type: Report from Study
  Country: US (occurrence: US)
  Receive Date: 20200220
  Receipt Date: 20200220
  Transmission Date: 20200409
  Serious: Yes (Hospitalization, Other)
  Sender: FDA-Public Use
  Company Number: US-ACTELION-A-NJ2017-158783

PATIENT
  Age: 63 Year
  Sex: Female

DRUGS (8)
  1. UPTRAVI [Suspect]
     Active Substance: SELEXIPAG
     Indication: PULMONARY ARTERIAL HYPERTENSION
     Dosage: 1400 MCG, BID
     Route: 048
     Dates: start: 20170119
  2. UPTRAVI [Suspect]
     Active Substance: SELEXIPAG
     Dosage: 600 MCG, BID
     Route: 048
     Dates: start: 20181123
  3. UPTRAVI [Suspect]
     Active Substance: SELEXIPAG
     Dosage: 1200 MCG, BID
     Route: 048
     Dates: start: 201812
  4. LETAIRIS [Concomitant]
     Active Substance: AMBRISENTAN
  5. UPTRAVI [Suspect]
     Active Substance: SELEXIPAG
     Dosage: 400 MCG, BID
     Route: 048
     Dates: start: 20170120
  6. UPTRAVI [Suspect]
     Active Substance: SELEXIPAG
     Dosage: 600 MCG QAM; 800 MCG QPM
     Route: 048
  7. TADALAFIL. [Concomitant]
     Active Substance: TADALAFIL
     Dosage: 40 MG, UNK
  8. UPTRAVI [Suspect]
     Active Substance: SELEXIPAG
     Dosage: 1400 (800MCG/200MCG) MCG BID
     Route: 048

REACTIONS (20)
  - Loss of consciousness [Unknown]
  - Musculoskeletal pain [Unknown]
  - Peripheral swelling [Unknown]
  - Unevaluable event [Unknown]
  - Pain in jaw [Unknown]
  - Diarrhoea [Unknown]
  - Transfusion [Unknown]
  - Pain in extremity [Recovering/Resolving]
  - Haemoglobin decreased [Recovering/Resolving]
  - Neck pain [Unknown]
  - Crying [Recovering/Resolving]
  - Myalgia [Unknown]
  - Infection [Unknown]
  - Iron deficiency anaemia [Recovering/Resolving]
  - Ear congestion [Unknown]
  - Vomiting [Unknown]
  - Headache [Unknown]
  - Condition aggravated [Recovering/Resolving]
  - Haematocrit decreased [Recovering/Resolving]
  - Ear disorder [Unknown]

NARRATIVE: CASE EVENT DATE: 20181123
